FAERS Safety Report 5159987-4 (Version None)
Quarter: 2006Q4

REPORT INFORMATION
  Report Type: 
  Country: None (occurrence: None)
  Receive Date: 20061129
  Receipt Date: 20060517
  Transmission Date: 20070319
  Serious: Yes (Other)
  Sender: FDA-Public Use
  Company Number: US-GLAXOSMITHKLINE-A0606192A

PATIENT
  Age: 32 Year
  Sex: Female

DRUGS (8)
  1. WELLBUTRIN [Suspect]
     Indication: DEPRESSION
     Route: 048
     Dates: start: 20051220, end: 20060428
  2. WELLBUTRIN [Suspect]
     Dosage: 150MG PER DAY
     Route: 048
     Dates: start: 20051201, end: 20051201
  3. ZOLOFT [Concomitant]
     Dates: start: 20060330
  4. PREDNISONE TAB [Concomitant]
  5. METHOTREXATE [Concomitant]
  6. ENBREL [Concomitant]
  7. PLAQUENIL [Concomitant]
  8. AMITRIPTYLINE HCL [Concomitant]

REACTIONS (3)
  - AGITATION [None]
  - DRUG INEFFECTIVE [None]
  - GRAND MAL CONVULSION [None]
